FAERS Safety Report 9357464 (Version 1)
Quarter: 2013Q2

REPORT INFORMATION
  Report Type: Report from Study
  Country: US (occurrence: US)
  Receive Date: 20130620
  Receipt Date: 20130620
  Transmission Date: 20140414
  Serious: Yes (Other)
  Sender: FDA-Public Use
  Company Number: PHEH2013US012321

PATIENT
  Sex: Female

DRUGS (21)
  1. GLEEVEC [Suspect]
     Indication: MYELOID LEUKAEMIA
     Dosage: 200 MG, BID
     Route: 048
  2. GLEEVEC [Suspect]
     Dosage: 400 MG, QD
     Route: 048
  3. BOSUTINIB [Suspect]
     Dosage: 3 DF, QD
     Dates: start: 20130427
  4. DASATINIB [Suspect]
     Dosage: 100 MG, QD
     Route: 048
  5. NILOTINIB [Suspect]
     Dosage: UNK UKN, UNK
     Dates: start: 2011
  6. LOSARTAN POTASSIUM/HYDROCHLOROTHIAZIDE [Concomitant]
  7. GLYBURIDE/METFORMIN [Concomitant]
     Dosage: 5 MG, QD (WITH BREAKFAST)
     Route: 048
  8. ATENOLOL [Concomitant]
     Dosage: 100 MG, QD
     Route: 048
  9. FAMOTIDINE [Concomitant]
  10. PLAVIX [Concomitant]
     Dosage: 75 MG, QD
     Route: 048
  11. ASPIRIN [Concomitant]
     Dosage: 81 MG, QD
     Route: 048
  12. NEXUM [Concomitant]
     Dosage: 20 MG, QD (EVERY MORNING BEFORE BREAKFAST)
     Route: 048
  13. ADVAIR DISKUS [Concomitant]
     Dosage: 1 PUFF EVERY 12 HOURS
  14. LIPITOR [Concomitant]
     Indication: HYPERLIPIDAEMIA
     Dosage: 40 MG, QD
     Route: 048
  15. CITALOPRAM [Concomitant]
     Dosage: 10 MG, QD
     Route: 048
  16. FLUTICASONE [Concomitant]
     Dosage: UNK UKN, DAILY
  17. HYDROXYUREA [Concomitant]
     Dosage: 4 DF, QD EVERY MORNING, OR 2 IN THE MORNING AND 2 AT NIGHT
     Route: 048
  18. ZYRTEC [Concomitant]
     Dosage: 10 MG, ONCE DAILY AS NEEDED
     Route: 048
  19. PROCHLORPERAZINE [Concomitant]
     Indication: VOMITING
     Dosage: 1 DF, EVERY 6 HOURS AS NEEDED
     Route: 048
  20. FLOVENT HFA [Concomitant]
     Dosage: 1 PUFF EVERY 12 HOURS
  21. ALBUTEROL [Concomitant]
     Dosage: 1.25 MG, EVERY 6 HOURS AS NEEDED

REACTIONS (58)
  - Paralysis [Unknown]
  - Dyspnoea [Unknown]
  - Dysuria [Unknown]
  - Urinary hesitation [Unknown]
  - Incontinence [Unknown]
  - Heart rate irregular [Unknown]
  - Change of bowel habit [Unknown]
  - Heart rate increased [Unknown]
  - Sputum abnormal [Unknown]
  - Wheezing [Unknown]
  - Abdominal discomfort [Unknown]
  - Palpitations [Unknown]
  - Weight decreased [Unknown]
  - Pyrexia [Unknown]
  - Fatigue [Unknown]
  - Night sweats [Recovered/Resolved]
  - Vision blurred [Unknown]
  - Diplopia [Unknown]
  - Eye pain [Unknown]
  - Deafness [Unknown]
  - Tinnitus [Unknown]
  - Dizziness [Unknown]
  - Epistaxis [Unknown]
  - Chest pain [Recovered/Resolved]
  - Cough [Unknown]
  - Abdominal pain [Unknown]
  - Appetite disorder [Unknown]
  - Nausea [Recovered/Resolved]
  - Vomiting [Recovered/Resolved]
  - Diarrhoea [Recovered/Resolved]
  - Constipation [Unknown]
  - Nocturia [Unknown]
  - Haematuria [Unknown]
  - Bone pain [Recovered/Resolved]
  - Myalgia [Unknown]
  - Back pain [Unknown]
  - Muscular weakness [Unknown]
  - Rash [Unknown]
  - Pruritus [Unknown]
  - Pain of skin [Unknown]
  - Syncope [Unknown]
  - Vertigo [Unknown]
  - Hot flush [Unknown]
  - Temperature intolerance [Unknown]
  - Polyuria [Unknown]
  - Polydipsia [Unknown]
  - Anaemia [Unknown]
  - Haemorrhagic disorder [Unknown]
  - Increased tendency to bruise [Unknown]
  - Depression [Unknown]
  - Anxiety [Unknown]
  - Gait disturbance [Unknown]
  - Sleep disorder [Unknown]
  - Neck pain [Unknown]
  - Drug intolerance [Unknown]
  - Swelling face [Unknown]
  - White blood cell count increased [Unknown]
  - Platelet count increased [Unknown]
